FAERS Safety Report 9737027 (Version 2)
Quarter: 2015Q3

REPORT INFORMATION
  Report Type: Spontaneous
  Country: US (occurrence: US)
  Receive Date: 20131206
  Receipt Date: 20150804
  Transmission Date: 20151125
  Serious: No
  Sender: FDA-Public Use
  Company Number: US-GILEAD-2009-0024039

PATIENT
  Age: 92 Year
  Sex: Male

DRUGS (9)
  1. ADVAIR HFA [Concomitant]
     Active Substance: FLUTICASONE PROPIONATE\SALMETEROL XINAFOATE
  2. NASONEX [Concomitant]
     Active Substance: MOMETASONE FUROATE
  3. LEVAQUIN [Concomitant]
     Active Substance: LEVOFLOXACIN
  4. LEVOTHYROXINE. [Concomitant]
     Active Substance: LEVOTHYROXINE
  5. PREVACID [Concomitant]
     Active Substance: LANSOPRAZOLE
  6. PREDNISONE. [Concomitant]
     Active Substance: PREDNISONE
  7. LETAIRIS [Suspect]
     Active Substance: AMBRISENTAN
     Indication: PULMONARY ARTERIAL HYPERTENSION
     Route: 048
     Dates: start: 20090701
  8. COLCHICINE. [Concomitant]
     Active Substance: COLCHICINE
  9. FISH OIL [Concomitant]
     Active Substance: FISH OIL

REACTIONS (2)
  - Oedema peripheral [Not Recovered/Not Resolved]
  - Anaemia [Not Recovered/Not Resolved]

NARRATIVE: CASE EVENT DATE: 20090701
